FAERS Safety Report 13595838 (Version 1)
Quarter: 2017Q2

REPORT INFORMATION
  Report Type: Spontaneous
  Country: US (occurrence: US)
  Receive Date: 20170531
  Receipt Date: 20170531
  Transmission Date: 20170830
  Serious: No
  Sender: FDA-Public Use
  Company Number: US-JNJFOC-20170507601

PATIENT
  Sex: Male
  Weight: 118.84 kg

DRUGS (2)
  1. TYLENOL [Suspect]
     Active Substance: ACETAMINOPHEN
     Route: 048
  2. TYLENOL [Suspect]
     Active Substance: ACETAMINOPHEN
     Indication: ANALGESIC THERAPY
     Dosage: NO MORE THAN 6 CAPLETS PER DAY (24 HOURS)
     Route: 048

REACTIONS (1)
  - Coagulopathy [Not Recovered/Not Resolved]
